FAERS Safety Report 6449317-X (Version None)
Quarter: 2009Q4

REPORT INFORMATION
  Report Type: 
  Country: None (occurrence: None)
  Receive Date: 20091120
  Receipt Date: 20091113
  Transmission Date: 20100525
  Serious: Yes (Hospitalization)
  Sender: FDA-Public Use
  Company Number: JP-EISAI INC.-E3810-02992-SPO-JP

PATIENT
  Sex: Male

DRUGS (9)
  1. PARIET (RABEPRAZOLE) [Suspect]
     Route: 048
     Dates: start: 20090604, end: 20090618
  2. TAMSULOSIN HYDROCHLORIDE [Concomitant]
     Route: 048
     Dates: start: 20090331, end: 20090618
  3. GASMOTIN [Concomitant]
     Route: 048
     Dates: start: 20090604, end: 20090617
  4. MUCOSTA [Concomitant]
     Route: 048
     Dates: start: 20090604, end: 20090604
  5. TAKEPRON [Concomitant]
     Route: 048
     Dates: start: 20090407, end: 20090414
  6. TAKEPRON [Concomitant]
     Indication: GASTROOESOPHAGEAL REFLUX DISEASE
     Route: 048
     Dates: start: 20090407, end: 20090421
  7. GASTER D [Concomitant]
     Route: 048
     Dates: start: 20090521, end: 20090605
  8. KLARICID [Concomitant]
     Route: 048
     Dates: start: 20090407, end: 20090414
  9. AMOXICILLIN [Concomitant]
     Route: 048
     Dates: start: 20090407, end: 20090414

REACTIONS (1)
  - INTERSTITIAL LUNG DISEASE [None]
